FAERS Safety Report 18884542 (Version 1)
Quarter: 2021Q1

REPORT INFORMATION
  Report Type: Report from Study
  Country: None (occurrence: US)
  Receive Date: 20210211
  Receipt Date: 20210211
  Transmission Date: 20210420
  Serious: Yes (Other)
  Sender: FDA-Public Use
  Company Number: US-ABBVIE-21K-163-3764032-00

PATIENT
  Sex: Female

DRUGS (2)
  1. CYMBALTA [Concomitant]
     Active Substance: DULOXETINE HYDROCHLORIDE
     Indication: PRODUCT USED FOR UNKNOWN INDICATION
  2. HUMIRA [Suspect]
     Active Substance: ADALIMUMAB
     Indication: PSORIATIC ARTHROPATHY
     Dosage: CF
     Route: 058

REACTIONS (6)
  - Feeling abnormal [Not Recovered/Not Resolved]
  - Carpal tunnel syndrome [Unknown]
  - Migraine [Not Recovered/Not Resolved]
  - Amnesia [Not Recovered/Not Resolved]
  - Fibromyalgia [Recovering/Resolving]
  - Impaired healing [Unknown]
